FAERS Safety Report 5611757-6 (Version None)
Quarter: 2008Q1

REPORT INFORMATION
  Report Type: 
  Country: None (occurrence: None)
  Receive Date: 20080128
  Receipt Date: 20080115
  Transmission Date: 20080703
  Serious: Yes (Hospitalization)
  Sender: FDA-Public Use
  Company Number: 8029342

PATIENT
  Age: 19 Year
  Sex: Male
  Weight: 66 kg

DRUGS (1)
  1. LEVETIRACETAM [Suspect]
     Dosage: 500 MG PO
     Route: 048
     Dates: start: 20071110, end: 20080103

REACTIONS (1)
  - IDIOPATHIC THROMBOCYTOPENIC PURPURA [None]
